FAERS Safety Report 11331080 (Version 1)
Quarter: 2015Q3

REPORT INFORMATION
  Report Type: Spontaneous
  Country: US (occurrence: US)
  Receive Date: 20150803
  Receipt Date: 20150803
  Transmission Date: 20151125
  Serious: Yes (Death)
  Sender: FDA-Public Use
  Company Number: US-PFIZER INC-2015253292

PATIENT
  Age: 79 Year
  Sex: Female
  Weight: 65 kg

DRUGS (1)
  1. AROMASIN [Suspect]
     Active Substance: EXEMESTANE
     Indication: BREAST CANCER FEMALE
     Dosage: 1 DF, 1X/DAY

REACTIONS (6)
  - Decreased appetite [Unknown]
  - Cardiac arrest [Fatal]
  - Somnolence [Unknown]
  - Second primary malignancy [Fatal]
  - Disease progression [Fatal]
  - Asthenia [Unknown]

NARRATIVE: CASE EVENT DATE: 201406
